FAERS Safety Report 25328483 (Version 1)
Quarter: 2025Q2

REPORT INFORMATION
  Report Type: Spontaneous
  Country: US (occurrence: US)
  Receive Date: 20250518
  Receipt Date: 20250518
  Transmission Date: 20250716
  Serious: Yes (Hospitalization, Other)
  Sender: SANOFI AVENTIS
  Company Number: US-SA-2025SA138089

PATIENT
  Age: 83 Year
  Sex: Female
  Weight: 61.36 kg

DRUGS (26)
  1. DUPIXENT [Suspect]
     Active Substance: DUPILUMAB
     Indication: Asthma
     Dosage: 300 MG, QOW
     Route: 058
     Dates: end: 202503
  2. PREDNISONE [Concomitant]
     Active Substance: PREDNISONE
  3. CIPRO [Concomitant]
     Active Substance: CIPROFLOXACIN HYDROCHLORIDE
  4. POTASSIUM CHLORIDE [Concomitant]
     Active Substance: POTASSIUM CHLORIDE
  5. ELIQUIS [Concomitant]
     Active Substance: APIXABAN
  6. ATORVASTATIN CALCIUM [Concomitant]
     Active Substance: ATORVASTATIN CALCIUM
  7. AZELASTINE HYDROCHLORIDE [Concomitant]
     Active Substance: AZELASTINE HYDROCHLORIDE
  8. ALBUTEROL\IPRATROPIUM [Concomitant]
     Active Substance: ALBUTEROL\IPRATROPIUM
  9. ALBUTEROL SULFATE [Concomitant]
     Active Substance: ALBUTEROL SULFATE
  10. SPIRIVA [Concomitant]
     Active Substance: TIOTROPIUM BROMIDE MONOHYDRATE
  11. ALPRAZOLAM [Concomitant]
     Active Substance: ALPRAZOLAM
  12. VITAMIN C [Concomitant]
     Active Substance: ASCORBIC ACID
  13. ZINC [Concomitant]
     Active Substance: ZINC
  14. CALCIUM CITRATE\CHOLECALCIFEROL [Concomitant]
     Active Substance: CALCIUM CITRATE\CHOLECALCIFEROL
  15. ADVAIR HFA [Concomitant]
     Active Substance: FLUTICASONE PROPIONATE\SALMETEROL XINAFOATE
  16. OMEPRAZOLE [Concomitant]
     Active Substance: OMEPRAZOLE
  17. FUROSEMIDE [Concomitant]
     Active Substance: FUROSEMIDE
  18. SIMVASTATIN [Concomitant]
     Active Substance: SIMVASTATIN
  19. GABAPENTIN [Concomitant]
     Active Substance: GABAPENTIN
  20. LEVOTHYROXINE [Concomitant]
     Active Substance: LEVOTHYROXINE
  21. MONTELUKAST SODIUM [Concomitant]
     Active Substance: MONTELUKAST SODIUM
  22. ENALAPRIL MALEATE [Concomitant]
     Active Substance: ENALAPRIL MALEATE
  23. ASPIRIN [Concomitant]
     Active Substance: ASPIRIN
  24. GUAIFENESIN AND DEXTROMETHORPHAN [Concomitant]
     Active Substance: DEXTROMETHORPHAN\GUAIFENESIN
  25. Adult fiber gummies with vitamin d [Concomitant]
  26. HERBALS\MINERALS\VITAMINS [Concomitant]
     Active Substance: HERBALS\MINERALS\VITAMINS

REACTIONS (2)
  - Pneumonia [Unknown]
  - Asthma [Not Recovered/Not Resolved]

NARRATIVE: CASE EVENT DATE: 20250101
